FAERS Safety Report 9729629 (Version 5)
Quarter: 2016Q2

REPORT INFORMATION
  Report Type: Spontaneous
  Country: GB (occurrence: GB)
  Receive Date: 20131204
  Receipt Date: 20160408
  Transmission Date: 20160815
  Serious: Yes (Other)
  Sender: FDA-Public Use
  Company Number: GB-ASTRAZENECA-2013SE86923

PATIENT
  Age: 19789 Day
  Sex: Male
  Weight: 80.3 kg

DRUGS (7)
  1. TEMOZOLOMIDE. [Suspect]
     Active Substance: TEMOZOLOMIDE
     Indication: GLIOBLASTOMA
     Dosage: 50 MG/M2, DOSE LEVEL 1
     Route: 048
     Dates: start: 20131007
  2. AZD2281 [Suspect]
     Active Substance: OLAPARIB
     Indication: GLIOBLASTOMA
     Dosage: 50 MG 1 IN 1 D
     Route: 048
  3. OMEPRAZOLE. [Suspect]
     Active Substance: OMEPRAZOLE
     Indication: GASTRITIS PROPHYLAXIS
     Route: 048
     Dates: start: 20130816
  4. SODIUM VALPROATE [Suspect]
     Active Substance: VALPROATE SODIUM
     Indication: SEIZURE
     Dosage: 60 MG UNK (NON AZ DRUG)
     Route: 048
     Dates: start: 20111111
  5. DEXAMETHASONE. [Suspect]
     Active Substance: DEXAMETHASONE
     Indication: SURGERY
     Route: 048
     Dates: start: 20131022
  6. TEMOZOLOMIDE. [Suspect]
     Active Substance: TEMOZOLOMIDE
     Indication: GLIOBLASTOMA
     Dosage: 50 MG/M2, DOSE LEVEL 1
     Route: 048
  7. AZD2281 [Suspect]
     Active Substance: OLAPARIB
     Indication: GLIOBLASTOMA
     Dosage: 100 MG 1 IN 1 D
     Route: 048
     Dates: start: 20131001

REACTIONS (1)
  - Atrial tachycardia [Recovered/Resolved]

NARRATIVE: CASE EVENT DATE: 20131111
